FAERS Safety Report 6753035-8 (Version None)
Quarter: 2010Q2

REPORT INFORMATION
  Report Type: 
  Country: None (occurrence: None)
  Receive Date: 20100603
  Receipt Date: 20100524
  Transmission Date: 20101027
  Serious: Yes (Hospitalization)
  Sender: FDA-Public Use
  Company Number: IT-ELI_LILLY_AND_COMPANY-IT201005006307

PATIENT
  Sex: Female

DRUGS (4)
  1. BYETTA [Suspect]
     Indication: TYPE 2 DIABETES MELLITUS
     Dosage: 10 UG, DAILY (1/D)
     Route: 065
     Dates: start: 20090310, end: 20090318
  2. METFORMIN HCL [Concomitant]
     Dosage: UNK, UNKNOWN
     Route: 065
     Dates: start: 20000101, end: 20090320
  3. REPAGLINIDE [Concomitant]
     Dosage: 1.5 MG, UNKNOWN
     Route: 065
     Dates: start: 20090310, end: 20090320
  4. RAMIPRIL [Concomitant]
     Dosage: 5 MG, UNKNOWN
     Route: 048
     Dates: start: 20020101, end: 20090320

REACTIONS (5)
  - DECREASED APPETITE [None]
  - LACTIC ACIDOSIS [None]
  - NAUSEA [None]
  - RENAL FAILURE ACUTE [None]
  - VOMITING [None]
